FAERS Safety Report 6923114-0 (Version None)
Quarter: 2010Q3

REPORT INFORMATION
  Report Type: 
  Country: None (occurrence: None)
  Receive Date: 20100813
  Receipt Date: 20100806
  Transmission Date: 20110219
  Serious: Yes (Other)
  Sender: FDA-Public Use
  Company Number: SE-PFIZER INC-2010098906

PATIENT
  Age: 53 Year
  Sex: Male

DRUGS (4)
  1. DETRUSITOL [Suspect]
     Indication: INCONTINENCE
     Dosage: UNK
     Dates: start: 20100804
  2. STILNOCT [Concomitant]
     Dosage: UNK
  3. TRIMEPRAZINE TAB [Concomitant]
     Dosage: UNK
  4. LITHIUM [Concomitant]
     Dosage: UNK

REACTIONS (1)
  - GOUT [None]
